FAERS Safety Report 6124245-8 (Version None)
Quarter: 2009Q1

REPORT INFORMATION
  Report Type: 
  Country: None (occurrence: None)
  Receive Date: 20090317
  Receipt Date: 20090305
  Transmission Date: 20090719
  Serious: Yes (Other)
  Sender: FDA-Public Use
  Company Number: 232494K09USA

PATIENT
  Age: 24 Year
  Sex: Male
  Weight: 107 kg

DRUGS (2)
  1. REBIF [Suspect]
     Indication: MULTIPLE SCLEROSIS
     Dosage: 22 MCF, 3 IN 1 WEEKS, SUBCUTANEOUS
     Route: 058
     Dates: start: 20080125
  2. ADVAIR HFA [Concomitant]

REACTIONS (2)
  - CONVULSION [None]
  - MEMORY IMPAIRMENT [None]
